FAERS Safety Report 5888102-4 (Version None)
Quarter: 2008Q3

REPORT INFORMATION
  Report Type: 
  Country: None (occurrence: None)
  Receive Date: 20080917
  Receipt Date: 20080917
  Transmission Date: 20090109
  Serious: Yes (Hospitalization)
  Sender: FDA-Public Use
  Company Number: None

PATIENT
  Sex: Male
  Weight: 87.1 kg

DRUGS (3)
  1. CISPLATIN [Suspect]
     Dosage: 158 MG
  2. ETOPOSIDE [Suspect]
     Dosage: 591 MG
  3. DARBOPOETIN ALFA [Concomitant]

REACTIONS (4)
  - ANAEMIA [None]
  - CARDIOVASCULAR DISORDER [None]
  - JUGULAR VEIN THROMBOSIS [None]
  - SUPERIOR VENA CAVAL OCCLUSION [None]
